FAERS Safety Report 25487333 (Version 2)
Quarter: 2025Q3

REPORT INFORMATION
  Report Type: Report from Study
  Country: AU (occurrence: AU)
  Receive Date: 20250627
  Receipt Date: 20250812
  Transmission Date: 20251021
  Serious: No
  Sender: ABBVIE
  Company Number: AU-ABBVIE-6344138

PATIENT
  Age: 61 Year
  Sex: Female
  Weight: 66 kg

DRUGS (7)
  1. SKYRIZI [Suspect]
     Active Substance: RISANKIZUMAB-RZAA
     Indication: Psoriatic arthropathy
     Dosage: STOP DATE: 2025
     Route: 058
     Dates: start: 20250430
  2. PROMETHAZINE [Concomitant]
     Active Substance: PROMETHAZINE HYDROCHLORIDE
     Indication: Product used for unknown indication
  3. LIDOCAINE HYDROCHLORIDE [Concomitant]
     Active Substance: LIDOCAINE HYDROCHLORIDE
     Indication: Product used for unknown indication
  4. PRILOCAINE [Concomitant]
     Active Substance: PRILOCAINE
     Indication: Product used for unknown indication
  5. GAVISCON [Concomitant]
     Active Substance: ALUMINUM HYDROXIDE\MAGNESIUM CARBONATE
     Indication: Product used for unknown indication
  6. Docusate-Senna [Concomitant]
     Indication: Product used for unknown indication
  7. ACETAMINOPHEN [Concomitant]
     Active Substance: ACETAMINOPHEN
     Indication: Product used for unknown indication

REACTIONS (1)
  - Haemarthrosis [Not Recovered/Not Resolved]

NARRATIVE: CASE EVENT DATE: 20250101
